FAERS Safety Report 6546231-6 (Version None)
Quarter: 2010Q1

REPORT INFORMATION
  Report Type: 
  Country: None (occurrence: None)
  Receive Date: 20100114
  Receipt Date: 20090719
  Transmission Date: 20100710
  Serious: No
  Sender: FDA-Public Use
  Company Number: 2009BM000172

PATIENT
  Age: 24 Year
  Sex: Male

DRUGS (3)
  1. KUVAN [Suspect]
     Indication: PHENYLKETONURIA
     Dosage: 16 TABLETS;QD;PO
     Route: 048
     Dates: start: 20080712
  2. OTHER NON-THERAPEUTIC AUXILIARY PRODUCTS [Concomitant]
  3. NUTRIENTS WITHOUT PHENYLALANINE [Concomitant]

REACTIONS (1)
  - ABDOMINAL PAIN UPPER [None]
